FAERS Safety Report 9282164 (Version 2)
Quarter: 2013Q4

REPORT INFORMATION
  Report Type: Spontaneous
  Country: US (occurrence: US)
  Receive Date: 20130510
  Receipt Date: 20131021
  Transmission Date: 20140711
  Serious: No
  Sender: FDA-Public Use
  Company Number: US-PFIZER INC-2013140246

PATIENT
  Age: 43 Year
  Sex: Female

DRUGS (2)
  1. NORVASC [Suspect]
     Dosage: 10 MG, DAILY
     Route: 048
     Dates: start: 20110801, end: 20110831
  2. ATENOLOL [Suspect]
     Dosage: UNK

REACTIONS (2)
  - Drug hypersensitivity [Unknown]
  - Dizziness [Recovering/Resolving]
